FAERS Safety Report 18115465 (Version 1)
Quarter: 2020Q3

REPORT INFORMATION
  Report Type: Spontaneous
  Country: CL (occurrence: CL)
  Receive Date: 20200805
  Receipt Date: 20200805
  Transmission Date: 20201103
  Serious: Yes (Other)
  Sender: FDA-Public Use
  Company Number: NVSC2020CL216656

PATIENT
  Age: 70 Year
  Sex: Male

DRUGS (1)
  1. SANDIMMUN NEORAL [Suspect]
     Active Substance: CYCLOSPORINE
     Indication: PRODUCT USED FOR UNKNOWN INDICATION
     Dosage: 10 MG, Q24H (4 EVERY 24 HOURS)
     Route: 065
     Dates: start: 201802

REACTIONS (3)
  - Syncope [Unknown]
  - Diarrhoea [Unknown]
  - Discomfort [Unknown]
